FAERS Safety Report 5281795-4 (Version None)
Quarter: 2007Q1

REPORT INFORMATION
  Report Type: 
  Country: None (occurrence: None)
  Receive Date: 20070330
  Receipt Date: 20070319
  Transmission Date: 20070707
  Serious: Yes (Hospitalization)
  Sender: FDA-Public Use
  Company Number: JP-ROCHE-486307

PATIENT
  Age: 44 Year
  Sex: Female
  Weight: 74 kg

DRUGS (3)
  1. TAMIFLU [Suspect]
     Indication: INFLUENZA
     Route: 048
     Dates: start: 20070213, end: 20070217
  2. CALONAL [Concomitant]
     Route: 048
     Dates: start: 20070213, end: 20070217
  3. PL [Concomitant]
     Route: 048
     Dates: start: 20070213, end: 20070217

REACTIONS (3)
  - LIVER DISORDER [None]
  - NEPHRITIS [None]
  - RENAL DISORDER [None]
